FAERS Safety Report 21878265 (Version 2)
Quarter: 2023Q1

REPORT INFORMATION
  Report Type: Spontaneous
  Country: US (occurrence: US)
  Receive Date: 20230118
  Receipt Date: 20230222
  Transmission Date: 20230418
  Serious: Yes (Other)
  Sender: FDA-Public Use
  Company Number: US-MALLINCKRODT-T202300062

PATIENT
  Sex: Female

DRUGS (2)
  1. H.P. ACTHAR [Suspect]
     Active Substance: CORTICOTROPIN
     Indication: Dermatomyositis
     Dosage: 1 MILLILITER (80 UNITS), TWICE A WEEK
     Route: 030
     Dates: start: 202011
  2. H.P. ACTHAR [Suspect]
     Active Substance: CORTICOTROPIN
     Indication: Polymyositis

REACTIONS (6)
  - Dermatomyositis [Unknown]
  - Polymyositis [Unknown]
  - Condition aggravated [Unknown]
  - Ankle fracture [Unknown]
  - Stress [Unknown]
  - Feeling abnormal [Not Recovered/Not Resolved]
